FAERS Safety Report 7575952-1 (Version None)
Quarter: 2011Q2

REPORT INFORMATION
  Report Type: 
  Country: None (occurrence: None)
  Receive Date: 20110628
  Receipt Date: 20091008
  Transmission Date: 20111010
  Serious: Yes (Hospitalization, Other)
  Sender: FDA-Public Use
  Company Number: US-BAYER-200935537NA

PATIENT
  Age: 72 Year
  Sex: Female
  Weight: 71 kg

DRUGS (20)
  1. TRASYLOL [Suspect]
     Indication: VENTRICULAR ASSIST DEVICE INSERTION
     Dosage: 200 ML (LOADING DOSE)
     Route: 042
     Dates: start: 20070509, end: 20070509
  2. PRIMACOR [Concomitant]
     Dosage: UNK
     Route: 042
     Dates: start: 20070509, end: 20070509
  3. HEPARIN [Concomitant]
     Dosage: 2000 U, UNK
     Route: 042
     Dates: start: 20070509, end: 20070509
  4. MANNITOL [Concomitant]
     Dosage: 12.5 G, UNK
     Route: 042
     Dates: start: 20070509, end: 20070509
  5. PLASMA [Concomitant]
     Dosage: 4 U, UNK
     Route: 042
     Dates: start: 20070509, end: 20070509
  6. FENTANYL [Concomitant]
     Dosage: 20 ML, UNK
     Route: 042
     Dates: start: 20070509, end: 20070509
  7. RED BLOOD CELLS [Concomitant]
     Dosage: 12 U, UNK
     Route: 042
     Dates: start: 20070509, end: 20070509
  8. CEFAZOLIN [Concomitant]
     Dosage: 200 ML/50 ML PER HOUR
     Route: 042
     Dates: start: 20070509, end: 20070509
  9. REGULAR INSULIN [Concomitant]
     Dosage: 150 U, UNK
     Route: 042
     Dates: start: 20070509, end: 20070509
  10. TRIAMTERENE AND HYDROCHLOROTHIAZIDE [Concomitant]
     Dosage: 37.5/25 MG (1/2 TAB) QD
     Route: 048
  11. TRASYLOL [Suspect]
     Indication: CORONARY ARTERY BYPASS
     Dosage: 1 ML (INITIAL DOSE)
     Route: 042
     Dates: start: 20070509, end: 20070509
  12. TRASYLOL [Suspect]
     Dosage: 50 UNK, UNK
     Route: 042
     Dates: start: 20070509, end: 20070509
  13. VYTORIN [Concomitant]
     Dosage: 10/20 DAILY
     Route: 048
  14. PROCAINAMIDE [Concomitant]
     Dosage: 1000 MG, UNK
     Route: 042
     Dates: start: 20070509, end: 20070509
  15. ATENOLOL [Concomitant]
     Dosage: 25 MG, UNK
     Route: 042
     Dates: start: 20070509, end: 20070509
  16. EPINEPHRINE [Concomitant]
     Dosage: 1 MG/ML, UNK
     Route: 042
     Dates: start: 20070509, end: 20070509
  17. PLATELETS [Concomitant]
     Dosage: 30 U, UNK
     Route: 042
     Dates: start: 20070509, end: 20070509
  18. NORVASC [Concomitant]
     Dosage: 10 MG, QD
     Route: 048
  19. NEXIUM [Concomitant]
     Dosage: 40 MG, QD
     Route: 048
  20. ATROPINE [Concomitant]
     Dosage: 0.4 MG/ML, UNK
     Route: 042
     Dates: start: 20070509, end: 20070509

REACTIONS (11)
  - UNEVALUABLE EVENT [None]
  - RENAL FAILURE [None]
  - RENAL INJURY [None]
  - INJURY [None]
  - EMOTIONAL DISTRESS [None]
  - STRESS [None]
  - RENAL IMPAIRMENT [None]
  - ANXIETY [None]
  - FEAR [None]
  - RENAL FAILURE ACUTE [None]
  - PAIN [None]
